FAERS Safety Report 18386512 (Version 1)
Quarter: 2020Q4

REPORT INFORMATION
  Report Type: Spontaneous
  Country: US (occurrence: US)
  Receive Date: 20201014
  Receipt Date: 20201014
  Transmission Date: 20210114
  Serious: Yes (Death)
  Sender: FDA-Public Use
  Company Number: None

PATIENT
  Age: 56 Year
  Sex: Male
  Weight: 113.4 kg

DRUGS (17)
  1. ALBUTEROL-IPRATROPIUM [Concomitant]
     Active Substance: ALBUTEROL\IPRATROPIUM
  2. BENZONATATE. [Concomitant]
     Active Substance: BENZONATATE
  3. CHLORHEXIDINE [Concomitant]
     Active Substance: CHLORHEXIDINE
  4. MORPHINE SULFATE. [Concomitant]
     Active Substance: MORPHINE SULFATE
  5. ALBUTEROL. [Concomitant]
     Active Substance: ALBUTEROL
  6. REMDESIVIR SOLUTION 100MG VIAL [Suspect]
     Active Substance: REMDESIVIR
     Indication: COVID-19 PNEUMONIA
     Route: 042
     Dates: start: 20200823, end: 20200823
  7. REMDESIVIR SOLUTION 100MG VIAL [Suspect]
     Active Substance: REMDESIVIR
     Indication: COVID-19 PNEUMONIA
     Dosage: ?          OTHER FREQUENCY:Q 24 HR;?
     Route: 042
     Dates: start: 20200824, end: 20200826
  8. INSULIN REGULAR [Concomitant]
     Active Substance: INSULIN NOS
  9. MELATONIN [Concomitant]
     Active Substance: MELATONIN
  10. WHITE PETROLATUM-MINERAL OIL EYE OINTMENT [Concomitant]
  11. DEXAMETHASONE. [Concomitant]
     Active Substance: DEXAMETHASONE
  12. PROPOFOL. [Concomitant]
     Active Substance: PROPOFOL
  13. ACETAMINOPHEN. [Concomitant]
     Active Substance: ACETAMINOPHEN
  14. GUAIFENESIN-CODEINE [Concomitant]
  15. LIDOCAINE. [Concomitant]
     Active Substance: LIDOCAINE
  16. MUPROCIN [Concomitant]
  17. DEXMEDETOMIDINE. [Concomitant]
     Active Substance: DEXMEDETOMIDINE

REACTIONS (2)
  - Septic shock [None]
  - Respiratory failure [None]

NARRATIVE: CASE EVENT DATE: 20200925
